FAERS Safety Report 20675864 (Version 1)
Quarter: 2022Q2

REPORT INFORMATION
  Report Type: Spontaneous
  Country: US (occurrence: US)
  Receive Date: 20220405
  Receipt Date: 20220405
  Transmission Date: 20220721
  Serious: No
  Sender: FDA-Public Use
  Company Number: US-BAYER-2022A044973

PATIENT

DRUGS (2)
  1. GADAVIST [Suspect]
     Active Substance: GADOBUTROL
     Indication: Magnetic resonance imaging
     Dosage: 6 ML
  2. GADAVIST [Suspect]
     Active Substance: GADOBUTROL
     Indication: Tinnitus

REACTIONS (4)
  - Headache [None]
  - Chest pain [None]
  - Chills [None]
  - Pain [None]

NARRATIVE: CASE EVENT DATE: 20220316
